FAERS Safety Report 26155269 (Version 2)
Quarter: 2025Q4

REPORT INFORMATION
  Report Type: Spontaneous
  Country: US (occurrence: US)
  Receive Date: 20251215
  Receipt Date: 20251229
  Transmission Date: 20260118
  Serious: Yes (Death)
  Sender: CHIMERIX
  Company Number: US-CHIMERIX-US-CHI-25-000596

PATIENT
  Sex: Male
  Weight: 24.943 kg

DRUGS (1)
  1. MODEYSO [Suspect]
     Active Substance: DORDAVIPRONE
     Indication: Brain stem glioma
     Dosage: 250 MILLIGRAM, WEEKLY
     Route: 048
     Dates: start: 20250913, end: 20251119

REACTIONS (1)
  - Disease progression [Fatal]
